FAERS Safety Report 11244375 (Version 1)
Quarter: 2015Q3

REPORT INFORMATION
  Report Type: Spontaneous
  Country: US (occurrence: None)
  Receive Date: 20150706
  Receipt Date: 20150706
  Transmission Date: 20151125
  Serious: Yes (Hospitalization)
  Sender: FDA-Public Use
  Company Number: None

PATIENT
  Age: 26 Month
  Sex: Male
  Weight: 12.7 kg

DRUGS (1)
  1. SULFAMETHOXAZOLE/TRIMETHROPRIM 40 MG/5 ML [Suspect]
     Active Substance: SULFAMETHOXAZOLE\TRIMETHOPRIM
     Indication: ANTIFUNGAL PROPHYLAXIS
     Dosage: 60 MG, MON-WED-FRI, ORAL
     Route: 048

REACTIONS (2)
  - Hypotension [None]
  - Warm type haemolytic anaemia [None]

NARRATIVE: CASE EVENT DATE: 20120112
